FAERS Safety Report 16386878 (Version 3)
Quarter: 2020Q2

REPORT INFORMATION
  Report Type: Report from Study
  Country: US (occurrence: US)
  Receive Date: 20190604
  Receipt Date: 20200507
  Transmission Date: 20200713
  Serious: Yes (Other)
  Sender: FDA-Public Use
  Company Number: US-ROCHE-2228291

PATIENT
  Sex: Female

DRUGS (1)
  1. OCREVUS [Suspect]
     Active Substance: OCRELIZUMAB
     Indication: MULTIPLE SCLEROSIS
     Dosage: DATE OF INFUSION :06/JUN/2018, 03/DEC/2018, 06/DEC/2018, 05/JUN/2019 AND 09/DEC/2019
     Route: 065
     Dates: start: 20170616

REACTIONS (2)
  - Urinary tract infection [Unknown]
  - Fatigue [Not Recovered/Not Resolved]
